FAERS Safety Report 9715005 (Version 1)
Quarter: 2013Q4

REPORT INFORMATION
  Report Type: Spontaneous
  Country: US (occurrence: US)
  Receive Date: 20131126
  Receipt Date: 20131126
  Transmission Date: 20140711
  Serious: No
  Sender: FDA-Public Use
  Company Number: US-NOVEN-13US007689

PATIENT
  Sex: Female

DRUGS (2)
  1. MINIVELLE [Suspect]
     Indication: HOT FLUSH
     Dosage: 0.1 MG AND 0.05MG, 2/WK
     Route: 062
  2. PROGESTERONE [Concomitant]
     Indication: MENOPAUSE

REACTIONS (2)
  - Oestradiol decreased [Not Recovered/Not Resolved]
  - Drug ineffective [Not Recovered/Not Resolved]
